FAERS Safety Report 19475520 (Version 2)
Quarter: 2021Q3

REPORT INFORMATION
  Report Type: Spontaneous
  Country: JP (occurrence: JP)
  Receive Date: 20210629
  Receipt Date: 20210730
  Transmission Date: 20211014
  Serious: Yes (Hospitalization)
  Sender: FDA-Public Use
  Company Number: JP-ORGANON-O2106JPN000365J

PATIENT
  Age: 80 Year
  Sex: Male

DRUGS (14)
  1. MAGNESIUM OXIDE. [Concomitant]
     Active Substance: MAGNESIUM OXIDE
     Dosage: 2970 MICROGRAM
     Route: 048
  2. URIADEC [Concomitant]
     Active Substance: TOPIROXOSTAT
     Dosage: 40 MICROGRAM
     Route: 048
  3. AMANTADINE HYDROCHLORIDE. [Suspect]
     Active Substance: AMANTADINE HYDROCHLORIDE
     Indication: DEMENTIA
     Dosage: 50 MILLIGRAM, QD
     Route: 048
     Dates: start: 20210610, end: 20210611
  4. MEMANTINE HYDROCHLORIDE. [Suspect]
     Active Substance: MEMANTINE HYDROCHLORIDE
     Indication: DEMENTIA ALZHEIMER^S TYPE
     Dosage: 20 MILLIGRAM
     Route: 048
     Dates: start: 2018, end: 2021
  5. AMANTADINE HYDROCHLORIDE. [Suspect]
     Active Substance: AMANTADINE HYDROCHLORIDE
     Indication: DEMENTIA
     Dosage: 50 MILLIGRAM, TID
     Route: 048
     Dates: start: 2018, end: 20210603
  6. AMANTADINE HYDROCHLORIDE. [Suspect]
     Active Substance: AMANTADINE HYDROCHLORIDE
     Indication: DEMENTIA
     Dosage: 100 MILLIGRAM, QD
     Route: 048
     Dates: start: 20210604, end: 20210609
  7. NICERGOLINE [Suspect]
     Active Substance: NICERGOLINE
     Indication: ABULIA
     Dosage: 15 MICROGRAM
     Route: 048
     Dates: start: 2018, end: 2021
  8. TAKECAB [Concomitant]
     Active Substance: VONOPRAZAN FUMARATE
     Dosage: 10 MILLIGRAM
     Route: 048
     Dates: start: 20210402
  9. GALANTAMINE OD [Suspect]
     Active Substance: GALANTAMINE HYDROBROMIDE
     Indication: DEMENTIA ALZHEIMER^S TYPE
     Dosage: 48 MILLIGRAM
     Route: 048
     Dates: start: 2018, end: 2021
  10. BAKTAR [Concomitant]
     Active Substance: SULFAMETHOXAZOLE\TRIMETHOPRIM
     Dosage: UNK
     Route: 048
     Dates: start: 20210402
  11. NU?LOTAN TABLETS 50MG [Suspect]
     Active Substance: LOSARTAN
     Indication: HYPERTENSION
     Dosage: 50 MILLIGRAM
     Route: 048
     Dates: start: 2018, end: 2021
  12. NU?LOTAN TABLETS 50MG [Suspect]
     Active Substance: LOSARTAN
     Indication: HYPERTENSION
     Dosage: UNK
     Route: 048
     Dates: start: 2021
  13. RELVAR ELLIPTA ABACUS [Concomitant]
     Active Substance: FLUTICASONE FUROATE\VILANTEROL TRIFENATATE
     Dosage: 7.5 MICROGRAM
     Route: 065
     Dates: start: 20210402
  14. PREDONINE [Concomitant]
     Active Substance: PREDNISOLONE
     Dosage: 7.5 MILLIGRAM
     Route: 048
     Dates: start: 20210402

REACTIONS (8)
  - Gait disturbance [Unknown]
  - Toxicity to various agents [Unknown]
  - Dehydration [Unknown]
  - Disturbance in social behaviour [Unknown]
  - Tremor [Recovered/Resolved]
  - Dyslalia [Recovered/Resolved]
  - Dysphagia [Recovering/Resolving]
  - Renal disorder [Unknown]

NARRATIVE: CASE EVENT DATE: 2021
